FAERS Safety Report 7776336-3 (Version None)
Quarter: 2011Q3

REPORT INFORMATION
  Report Type: 
  Country: None (occurrence: None)
  Receive Date: 20110926
  Receipt Date: 20110922
  Transmission Date: 20111222
  Serious: Yes (Other)
  Sender: FDA-Public Use
  Company Number: US-BRACCO-006798

PATIENT
  Age: 34 Year
  Sex: Male
  Weight: 68 kg

DRUGS (2)
  1. ISOVUE-370 [Suspect]
     Indication: CHEST PAIN
     Dosage: IV ON RIGHT SIDE
     Route: 042
     Dates: start: 20110811, end: 20110811
  2. ISOVUE-370 [Suspect]
     Indication: ANGIOGRAM
     Dosage: IV ON RIGHT SIDE
     Route: 042
     Dates: start: 20110811, end: 20110811

REACTIONS (3)
  - CONTUSION [None]
  - BLINDNESS UNILATERAL [None]
  - HEADACHE [None]
